FAERS Safety Report 10244363 (Version 1)
Quarter: 2014Q2

REPORT INFORMATION
  Report Type: Report from Study
  Country: US (occurrence: US)
  Receive Date: 20140618
  Receipt Date: 20140618
  Transmission Date: 20141212
  Serious: Yes (Hospitalization, Other)
  Sender: FDA-Public Use
  Company Number: US-ABBVIE-14P-163-1245976-00

PATIENT
  Age: 60 Year
  Sex: Female

DRUGS (14)
  1. HUMIRA [Suspect]
     Indication: COLITIS ULCERATIVE
     Dates: start: 20140322, end: 20140519
  2. CLINDAMYCIN [Suspect]
     Indication: PHARYNGITIS STREPTOCOCCAL
     Dates: start: 201405, end: 201405
  3. NEXIUM [Concomitant]
     Indication: GASTROOESOPHAGEAL REFLUX DISEASE
  4. TRIAM HCTZ [Concomitant]
     Indication: FLUID RETENTION
  5. XARELTO [Concomitant]
     Indication: THROMBOSIS PROPHYLAXIS
  6. TRAZODONE [Concomitant]
     Indication: INSOMNIA
  7. ZOFRAN [Concomitant]
     Indication: NAUSEA
  8. NITROGLYCERIN [Concomitant]
     Indication: CHEST PAIN
  9. ALBUTEROL SULFATE [Concomitant]
     Indication: PRODUCT USED FOR UNKNOWN INDICATION
  10. CALCIUM [Concomitant]
     Indication: PRODUCT USED FOR UNKNOWN INDICATION
  11. BIOTIN [Concomitant]
     Indication: PRODUCT USED FOR UNKNOWN INDICATION
  12. VITAMIN D3 [Concomitant]
     Indication: PRODUCT USED FOR UNKNOWN INDICATION
  13. PAXIL [Concomitant]
     Indication: DEPRESSION
     Dosage: AT BEDTIME
  14. RANITIDINE [Concomitant]
     Indication: GASTROOESOPHAGEAL REFLUX DISEASE
     Dosage: AM AND PM

REACTIONS (9)
  - Hypokalaemia [Unknown]
  - Clostridium difficile infection [Recovering/Resolving]
  - Colitis ulcerative [Unknown]
  - Leukocytosis [Unknown]
  - Hypotension [Unknown]
  - Pyrexia [Unknown]
  - Pharyngitis streptococcal [Unknown]
  - Vein collapse [Unknown]
  - Hypoaesthesia [Unknown]
